FAERS Safety Report 4544222-8 (Version None)
Quarter: 2005Q1

REPORT INFORMATION
  Report Type: 
  Country: None (occurrence: None)
  Receive Date: 20050104
  Receipt Date: 20041222
  Transmission Date: 20050727
  Serious: Yes (Death, Life-Threatening)
  Sender: FDA-Public Use
  Company Number: US-GLAXOSMITHKLINE-A0538389A

PATIENT
  Age: 88 Year
  Sex: Male

DRUGS (1)
  1. ECOTRIN REGULAR STRENGTH TABLETS [Suspect]
     Route: 048
     Dates: end: 20040901

REACTIONS (1)
  - BRAIN NEOPLASM [None]
